FAERS Safety Report 19853843 (Version 1)
Quarter: 2021Q3

REPORT INFORMATION
  Report Type: Spontaneous
  Country: US (occurrence: US)
  Receive Date: 20210920
  Receipt Date: 20210920
  Transmission Date: 20211014
  Serious: Yes (Hospitalization)
  Sender: FDA-Public Use
  Company Number: US-BRISTOL-MYERS SQUIBB COMPANY-BMS-2021-093138

PATIENT
  Age: 75 Year
  Sex: Male

DRUGS (2)
  1. SPRYCEL [Suspect]
     Active Substance: DASATINIB
     Dosage: 70 MILLIGRAM, BID
     Route: 048
     Dates: start: 20210820, end: 202108
  2. SPRYCEL [Suspect]
     Active Substance: DASATINIB
     Indication: MALIGNANT NEOPLASM PROGRESSION
     Dosage: UNK
     Route: 065

REACTIONS (2)
  - Intentional product use issue [Unknown]
  - Hospitalisation [Unknown]
